FAERS Safety Report 21385911 (Version 1)
Quarter: 2022Q3

REPORT INFORMATION
  Report Type: Spontaneous
  Country: GB (occurrence: GB)
  Receive Date: 20220928
  Receipt Date: 20220928
  Transmission Date: 20221026
  Serious: Yes (Hospitalization)
  Sender: FDA-Public Use
  Company Number: GB-MYLANLABS-2022M1096597

PATIENT
  Sex: Female

DRUGS (1)
  1. CLOZARIL [Suspect]
     Active Substance: CLOZAPINE
     Indication: Schizophrenia
     Dosage: UNK(STOP DATE APPROXIMATE 12-SEP-2022)
     Route: 048
     Dates: start: 20080413, end: 202209

REACTIONS (2)
  - Mental impairment [Unknown]
  - Therapy cessation [Unknown]
